FAERS Safety Report 14084345 (Version 2)
Quarter: 2017Q4

REPORT INFORMATION
  Report Type: Spontaneous
  Country: FR (occurrence: FR)
  Receive Date: 20171013
  Receipt Date: 20171016
  Transmission Date: 20180321
  Serious: Yes (Hospitalization, Other)
  Sender: FDA-Public Use
  Company Number: FR-JNJFOC-20171004247

PATIENT
  Age: 86 Year
  Sex: Male

DRUGS (13)
  1. MIANSERINE [Suspect]
     Active Substance: MIANSERIN HYDROCHLORIDE
     Indication: ABNORMAL BEHAVIOUR
     Dosage: IN THE EVENING
     Route: 048
     Dates: start: 20170118, end: 20170830
  2. DAFALGAN [Concomitant]
     Active Substance: ACETAMINOPHEN
     Dosage: 1 IN MORNING AND MIDDAY
     Route: 065
  3. SERESTA [Suspect]
     Active Substance: OXAZEPAM
     Indication: ABNORMAL BEHAVIOUR
     Dosage: 1 IN MORNING, EVENING AND BEDTIME
     Route: 048
     Dates: start: 20170607
  4. LANSOYL [Concomitant]
     Active Substance: MINERAL OIL
     Dosage: 1 IN THE MORNING
     Route: 065
  5. SEGLOR [Concomitant]
     Active Substance: DIHYDROERGOTAMINE MESYLATE
     Indication: LOSS OF CONSCIOUSNESS
     Route: 065
  6. INEXIUM [Concomitant]
     Active Substance: ESOMEPRAZOLE
     Dosage: 1 IN THE EVENING
     Route: 065
  7. GAVISCON [Concomitant]
     Active Substance: ALUMINUM HYDROXIDE\MAGNESIUM CARBONATE
     Dosage: 1 IN MORNING AND 1 IN EVENING
     Route: 065
  8. LASILIX [Concomitant]
     Active Substance: FUROSEMIDE
     Dosage: 1 IN MORNING
     Route: 065
  9. RISPERDAL [Suspect]
     Active Substance: RISPERIDONE
     Indication: ABNORMAL BEHAVIOUR
     Dosage: IN THE MORNING
     Route: 048
     Dates: start: 20170823, end: 20170830
  10. SERESTA [Suspect]
     Active Substance: OXAZEPAM
     Indication: ABNORMAL BEHAVIOUR
     Route: 048
  11. LAROXYL [Suspect]
     Active Substance: AMITRIPTYLINE HYDROCHLORIDE
     Indication: ABNORMAL BEHAVIOUR
     Dosage: 1 IN MORNING AND 1 IN EVENING
     Route: 065
     Dates: end: 20170830
  12. SPASFON-LYOC [Concomitant]
     Active Substance: PHLOROGLUCINOL
     Dosage: 1 IN THE MORNING, MIDDAY AND EVENING
     Route: 065
  13. BRONCHOKOD [Concomitant]
     Active Substance: CARBOCYSTEINE
     Dosage: 1 IN THE MORNING, MIDDAY AND EVENING
     Route: 065

REACTIONS (7)
  - Bronchitis [Unknown]
  - Coma [Unknown]
  - Oxygen saturation decreased [Unknown]
  - Disturbance in attention [Recovered/Resolved]
  - Hyperthermia [Unknown]
  - Off label use [Unknown]
  - Product use in unapproved indication [Unknown]

NARRATIVE: CASE EVENT DATE: 20170823
